FAERS Safety Report 15727026 (Version 1)
Quarter: 2018Q4

REPORT INFORMATION
  Report Type: Spontaneous
  Country: FR (occurrence: FR)
  Receive Date: 20181217
  Receipt Date: 20181217
  Transmission Date: 20190205
  Serious: Yes (Hospitalization)
  Sender: FDA-Public Use
  Company Number: FR-TEVA-2018-FR-987021

PATIENT
  Age: 65 Year
  Sex: Male
  Weight: 102 kg

DRUGS (2)
  1. CISPLATINE [Suspect]
     Active Substance: CISPLATIN
     Indication: ADENOCARCINOMA
     Dosage: 160 MILLIGRAM DAILY;
     Route: 042
     Dates: start: 20180918, end: 20180918
  2. NAVELBINE [Suspect]
     Active Substance: VINORELBINE TARTRATE
     Indication: ADENOCARCINOMA
     Route: 042
     Dates: start: 20180918, end: 20180924

REACTIONS (1)
  - Acute kidney injury [Recovering/Resolving]

NARRATIVE: CASE EVENT DATE: 20180928
